FAERS Safety Report 16834959 (Version 1)
Quarter: 2020Q3

REPORT INFORMATION
  Report Type: Report from Study
  Country: RU (occurrence: RU)
  Receive Date: 20190920
  Receipt Date: 20190920
  Transmission Date: 20201105
  Serious: Yes (Hospitalization, Other)
  Sender: FDA-Public Use
  Company Number: RU-JNJFOC-20190618524

PATIENT
  Age: 74 Year
  Sex: Male
  Weight: 85 kg

DRUGS (15)
  1. ACETYLSALICYLIC ACID [Suspect]
     Active Substance: ASPIRIN
     Indication: PERIPHERAL ARTERIAL OCCLUSIVE DISEASE
     Route: 048
     Dates: start: 20170908, end: 20171121
  2. PLACEBO [Suspect]
     Active Substance: UNSPECIFIED INGREDIENT
     Indication: PERIPHERAL REVASCULARISATION
     Route: 048
     Dates: start: 20170908, end: 20171121
  3. PLACEBO [Suspect]
     Active Substance: UNSPECIFIED INGREDIENT
     Route: 048
     Dates: start: 20190206
  4. PLACEBO [Suspect]
     Active Substance: UNSPECIFIED INGREDIENT
     Route: 048
     Dates: start: 20171121, end: 20180208
  5. PLACEBO [Suspect]
     Active Substance: UNSPECIFIED INGREDIENT
     Route: 048
     Dates: start: 20180208, end: 20180802
  6. PLACEBO [Suspect]
     Active Substance: UNSPECIFIED INGREDIENT
     Indication: THROMBOSIS PROPHYLAXIS
     Route: 048
     Dates: start: 20170809, end: 20170908
  7. ACETYLSALICYLIC ACID [Suspect]
     Active Substance: ASPIRIN
     Indication: THROMBOSIS PROPHYLAXIS
     Route: 048
     Dates: start: 20170809, end: 20170908
  8. ACETYLSALICYLIC ACID [Suspect]
     Active Substance: ASPIRIN
     Route: 048
     Dates: start: 20180208, end: 20180802
  9. PLACEBO [Suspect]
     Active Substance: UNSPECIFIED INGREDIENT
     Route: 048
     Dates: start: 20180802, end: 20190206
  10. CARBAMAZEPINE. [Concomitant]
     Active Substance: CARBAMAZEPINE
     Indication: HERPES ZOSTER
     Route: 048
     Dates: start: 20190106, end: 20190108
  11. ACETYLSALICYLIC ACID [Suspect]
     Active Substance: ASPIRIN
     Route: 048
     Dates: start: 20190206
  12. PLACEBO [Suspect]
     Active Substance: UNSPECIFIED INGREDIENT
     Indication: PERIPHERAL ARTERIAL OCCLUSIVE DISEASE
     Route: 048
     Dates: start: 20170908, end: 20171121
  13. ACETYLSALICYLIC ACID [Suspect]
     Active Substance: ASPIRIN
     Indication: PERIPHERAL REVASCULARISATION
     Route: 048
     Dates: start: 20171121, end: 20180208
  14. ACETYLSALICYLIC ACID [Suspect]
     Active Substance: ASPIRIN
     Route: 048
     Dates: start: 20180802, end: 20190206
  15. CAFFEINE/CHLORPHENIRAMINE/PARACETAMOL/PHENYLEPHRINE TABLET [Concomitant]
     Indication: RESPIRATORY TRACT INFECTION
     Dosage: RINZA, 1 TAB DAILY
     Route: 048
     Dates: start: 20190106, end: 20190108

REACTIONS (4)
  - Pneumonia [Recovered/Resolved]
  - Lung neoplasm [Not Recovered/Not Resolved]
  - Pulmonary tuberculosis [Unknown]
  - Mycobacterium tuberculosis complex test negative [Unknown]

NARRATIVE: CASE EVENT DATE: 20181212
